FAERS Safety Report 9185388 (Version 2)
Quarter: 2013Q3

REPORT INFORMATION
  Report Type: Spontaneous
  Country: US (occurrence: US)
  Receive Date: 20130325
  Receipt Date: 20130917
  Transmission Date: 20140515
  Serious: No
  Sender: FDA-Public Use
  Company Number: US-BIOGENIDEC-2013BI025188

PATIENT
  Sex: Female

DRUGS (1)
  1. TYSABRI [Suspect]
     Indication: MULTIPLE SCLEROSIS
     Route: 042
     Dates: start: 20111013

REACTIONS (11)
  - Balance disorder [Recovered/Resolved]
  - Cataract [Recovered/Resolved]
  - Diabetes mellitus [Not Recovered/Not Resolved]
  - Tooth discolouration [Not Recovered/Not Resolved]
  - Nuclear magnetic resonance imaging abnormal [Not Recovered/Not Resolved]
  - Parkinson^s disease [Recovered/Resolved]
  - Ill-defined disorder [Recovered/Resolved]
  - Visual impairment [Recovered/Resolved]
  - Arthralgia [Recovered/Resolved]
  - Tooth abscess [Recovered/Resolved]
  - Asthenia [Recovered/Resolved]
